FAERS Safety Report 18312903 (Version 1)
Quarter: 2020Q3

REPORT INFORMATION
  Report Type: Spontaneous
  Country: US (occurrence: US)
  Receive Date: 20200925
  Receipt Date: 20200925
  Transmission Date: 20201103
  Serious: Yes (Other)
  Sender: FDA-Public Use
  Company Number: None

PATIENT
  Age: 65 Year
  Sex: Female
  Weight: 91.35 kg

DRUGS (5)
  1. HYDROCORTISONE. [Concomitant]
     Active Substance: HYDROCORTISONE
  2. CENTRUM ADULTS [Concomitant]
  3. METFORMIN [Concomitant]
     Active Substance: METFORMIN HYDROCHLORIDE
  4. LISINOPRIL. [Concomitant]
     Active Substance: LISINOPRIL
  5. CAPECITABINE. [Suspect]
     Active Substance: CAPECITABINE
     Indication: COLON CANCER
     Route: 048
     Dates: start: 20200622

REACTIONS (2)
  - Skin fissures [None]
  - Dry skin [None]

NARRATIVE: CASE EVENT DATE: 20200925
